FAERS Safety Report 4517336-6 (Version None)
Quarter: 2004Q4

REPORT INFORMATION
  Report Type: 
  Country: None (occurrence: None)
  Receive Date: 20041012
  Receipt Date: 20040324
  Transmission Date: 20050328
  Serious: Yes (Hospitalization)
  Sender: FDA-Public Use
  Company Number: 2004-03-1860

PATIENT
  Age: 72 Year
  Sex: Female
  Weight: 77.1115 kg

DRUGS (8)
  1. ISOSORBIDE MONONITRATE [Suspect]
     Indication: ATRIOVENTRICULAR BLOCK
     Dosage: 120MG BID ORAL
     Route: 048
  2. ISOSORBIDE MONONITRATE [Suspect]
     Indication: CHEST PAIN
     Dosage: 120MG BID ORAL
     Route: 048
  3. LOVASTATIN [Concomitant]
  4. ATENOLOL [Concomitant]
  5. INSULIN INJECTABLE [Suspect]
  6. ASPIRIN [Concomitant]
  7. MULTI-VITAMINS [Concomitant]
  8. PLAVIX [Concomitant]

REACTIONS (2)
  - CHEST PAIN [None]
  - DRUG INEFFECTIVE [None]
